FAERS Safety Report 10336309 (Version 1)
Quarter: 2014Q3

REPORT INFORMATION
  Report Type: Spontaneous
  Country: US (occurrence: US)
  Receive Date: 20140723
  Receipt Date: 20140723
  Transmission Date: 20150326
  Serious: No
  Sender: FDA-Public Use
  Company Number: US-BRISTOL-MYERS SQUIBB COMPANY-20071817

PATIENT
  Age: 51 Year
  Sex: Female
  Weight: 58.96 kg

DRUGS (4)
  1. CARVEDILOL. [Concomitant]
     Active Substance: CARVEDILOL
  2. LISINOPRIL. [Concomitant]
     Active Substance: LISINOPRIL
  3. AMLODIPINE [Concomitant]
     Active Substance: AMLODIPINE BESYLATE
  4. COUMADIN [Suspect]
     Active Substance: WARFARIN SODIUM
     Dosage: INCREASED THE DOSE FROM 5 MG TO 7 MG ?FURTHER INCREASED THE DOSE TO 9 MG.

REACTIONS (1)
  - International normalised ratio decreased [Unknown]
